FAERS Safety Report 14578854 (Version 2)
Quarter: 2018Q1

REPORT INFORMATION
  Report Type: Report from Study
  Country: US (occurrence: US)
  Receive Date: 20180227
  Receipt Date: 20180228
  Transmission Date: 20180509
  Serious: Yes (Hospitalization, Other)
  Sender: FDA-Public Use
  Company Number: US-BAYER-2018-029527

PATIENT
  Age: 56 Year
  Sex: Male

DRUGS (1)
  1. NEXAVAR [Suspect]
     Active Substance: SORAFENIB
     Indication: HEPATOCELLULAR CARCINOMA
     Dosage: 200 MG
     Route: 048
     Dates: start: 20180204, end: 20180204

REACTIONS (7)
  - Dyspnoea [None]
  - Blood pressure diastolic increased [None]
  - Hepatocellular carcinoma [None]
  - Dry mouth [None]
  - Musculoskeletal chest pain [None]
  - Hiccups [None]
  - Vomiting [None]

NARRATIVE: CASE EVENT DATE: 20180204
